FAERS Safety Report 5211592-7 (Version None)
Quarter: 2007Q1

REPORT INFORMATION
  Report Type: 
  Country: None (occurrence: None)
  Receive Date: 20070117
  Receipt Date: 20070117
  Transmission Date: 20070707
  Serious: Yes (Hospitalization)
  Sender: FDA-Public Use
  Company Number: None

PATIENT
  Age: 80 Year
  Sex: Male
  Weight: 106.1417 kg

DRUGS (14)
  1. WARFARIN SODIUM [Suspect]
     Indication: ATRIAL FIBRILLATION
     Dosage: 4MG DAILY PO
     Route: 048
  2. SEVELAMER [Concomitant]
  3. NPH INSULIN [Concomitant]
  4. WARFARIN SODIUM [Concomitant]
  5. METOPROLOL SUCCINATE [Concomitant]
  6. ALBUTEROL [Concomitant]
  7. BUMETANIDE [Concomitant]
  8. SIMVASTATIN [Concomitant]
  9. REGULAR INSULIN [Concomitant]
  10. HYDROCODONE BITARTRATE [Concomitant]
  11. M.V.I. [Concomitant]
  12. CEPHALEXIN [Concomitant]
  13. DIGOXIN [Concomitant]
  14. DILTIAZEM [Concomitant]

REACTIONS (4)
  - CHEST PAIN [None]
  - DRUG TOXICITY [None]
  - HAEMATOCHEZIA [None]
  - URINARY TRACT INFECTION [None]
